FAERS Safety Report 25964827 (Version 4)
Quarter: 2025Q4

REPORT INFORMATION
  Report Type: Report from Study
  Country: EU (occurrence: EU)
  Receive Date: 20251027
  Receipt Date: 20251117
  Transmission Date: 20260118
  Serious: Yes (Hospitalization)
  Sender: ABBVIE
  Company Number: EU-ABBVIE-6519550

PATIENT
  Age: 84 Year
  Sex: Male
  Weight: 80 kg

DRUGS (9)
  1. FOSCARBIDOPA\FOSLEVODOPA [Suspect]
     Active Substance: FOSCARBIDOPA\FOSLEVODOPA
     Indication: Parkinson^s disease
     Dosage: CRN: 0.24 ML/H, CR: 0.31 ML/H, CRH: 0.34 ML/H, ED: 0.25 ML?FIRST ADMIN DATE: OCT 2025
     Route: 058
  2. FOSCARBIDOPA\FOSLEVODOPA [Suspect]
     Active Substance: FOSCARBIDOPA\FOSLEVODOPA
     Dosage: LAST ADMIN DATE- OCT 2025?CRN: 0.22 ML/H, CR: 0.29 ML/H, CRH: 0.35 ML/H, ED: 0.25 ML.
     Route: 058
     Dates: start: 20251014
  3. METAMIZOLE [Concomitant]
     Active Substance: METAMIZOLE
     Indication: Product used for unknown indication
  4. ATORVASTATIN [Concomitant]
     Active Substance: ATORVASTATIN
     Indication: Product used for unknown indication
  5. ASPIRIN [Concomitant]
     Active Substance: ASPIRIN
     Indication: Product used for unknown indication
  6. ALLOPURINOL [Concomitant]
     Active Substance: ALLOPURINOL
     Indication: Product used for unknown indication
  7. METFORMIN [Concomitant]
     Active Substance: METFORMIN HYDROCHLORIDE
     Indication: Product used for unknown indication
  8. METOPROLOL [Concomitant]
     Active Substance: METOPROLOL
     Indication: Product used for unknown indication
  9. CLOZAPINE [Concomitant]
     Active Substance: CLOZAPINE
     Indication: Parkinson^s disease

REACTIONS (6)
  - Back pain [Not Recovered/Not Resolved]
  - Dizziness [Unknown]
  - Fatigue [Not Recovered/Not Resolved]
  - Musculoskeletal stiffness [Not Recovered/Not Resolved]
  - Hallucination [Not Recovered/Not Resolved]
  - On and off phenomenon [Unknown]

NARRATIVE: CASE EVENT DATE: 20250101
